FAERS Safety Report 9695895 (Version 4)
Quarter: 2013Q4

REPORT INFORMATION
  Report Type: Report from Study
  Country: BR (occurrence: BR)
  Receive Date: 20131119
  Receipt Date: 20131211
  Transmission Date: 20140711
  Serious: Yes (Hospitalization, Other)
  Sender: FDA-Public Use
  Company Number: BR-ROCHE-725088

PATIENT
  Age: 43 Year
  Sex: Female
  Weight: 51 kg

DRUGS (26)
  1. MABTHERA [Suspect]
     Indication: SYSTEMIC LUPUS ERYTHEMATOSUS
     Dosage: FORM: INFUSION
     Route: 042
     Dates: start: 20090210, end: 20100308
  2. MABTHERA [Suspect]
     Route: 042
  3. MABTHERA [Suspect]
     Route: 042
  4. MABTHERA [Suspect]
     Route: 042
  5. MABTHERA [Suspect]
     Route: 042
  6. AZITHROMYCIN [Suspect]
     Indication: OROPHARYNGEAL PAIN
     Dosage: OTHER INDICATION: FEVER
     Route: 065
  7. RANITIDINE [Concomitant]
     Route: 065
  8. EUTHYROX [Concomitant]
     Route: 065
  9. EUTHYROX [Concomitant]
     Route: 065
  10. DEFLAZACORT [Concomitant]
     Route: 065
  11. DEFLAZACORT [Concomitant]
     Route: 065
  12. DEFLAZACORT [Concomitant]
     Route: 065
  13. HYDROXYCHLOROQUINE [Concomitant]
     Dosage: DRUG REPORTED AS: HYDROXYCHLOROQUINE FORMULA
     Route: 065
  14. HYDROXYCHLOROQUINE [Concomitant]
     Route: 065
  15. HYDROCHLOROTHIAZIDE [Concomitant]
     Indication: HYPERTENSION
  16. CAPTOPRIL [Concomitant]
     Indication: HYPERTENSION
     Route: 065
  17. NORIPURUM [Concomitant]
  18. CELESTONE [Concomitant]
     Route: 065
  19. AMLODIPINE [Concomitant]
  20. CHLOROQUINE PHOSPHATE [Concomitant]
  21. PREDNISONE [Concomitant]
  22. TRAMAL [Concomitant]
  23. METHOTREXATE [Concomitant]
  24. PRELONE [Concomitant]
  25. RIVOTRIL [Concomitant]
     Indication: INSOMNIA
  26. RENAGEL [Concomitant]

REACTIONS (52)
  - Anaemia [Recovering/Resolving]
  - Renal failure [Unknown]
  - Anaemia [Not Recovered/Not Resolved]
  - Renal failure [Recovering/Resolving]
  - Fatigue [Unknown]
  - Oral herpes [Unknown]
  - Pharyngeal inflammation [Unknown]
  - Malaise [Recovering/Resolving]
  - Cough [Recovering/Resolving]
  - Defaecation urgency [Recovering/Resolving]
  - Musculoskeletal discomfort [Recovering/Resolving]
  - Hot flush [Recovering/Resolving]
  - Erythema [Recovering/Resolving]
  - Nausea [Recovering/Resolving]
  - Dyspnoea [Recovering/Resolving]
  - Pruritus [Recovering/Resolving]
  - Pain [Unknown]
  - Local swelling [Unknown]
  - Joint range of motion decreased [Unknown]
  - Hand deformity [Unknown]
  - Finger deformity [Unknown]
  - Weight increased [Unknown]
  - Tooth fracture [Recovered/Resolved]
  - Tachycardia [Unknown]
  - Headache [Recovering/Resolving]
  - Dizziness [Recovering/Resolving]
  - Vomiting [Recovering/Resolving]
  - Decreased appetite [Recovering/Resolving]
  - Lymphadenitis bacterial [Recovering/Resolving]
  - Pyrexia [Not Recovered/Not Resolved]
  - Oropharyngeal pain [Not Recovered/Not Resolved]
  - Sensation of foreign body [Not Recovered/Not Resolved]
  - Rheumatoid arthritis [Unknown]
  - Rotavirus infection [Unknown]
  - Osteoarthritis [Not Recovered/Not Resolved]
  - Cyst [Unknown]
  - Sleep disorder [Not Recovered/Not Resolved]
  - White blood cell count decreased [Unknown]
  - Swelling [Unknown]
  - Hypersensitivity [Unknown]
  - Burning sensation [Unknown]
  - White blood cell count decreased [Not Recovered/Not Resolved]
  - Diarrhoea [Recovered/Resolved]
  - Nausea [Recovered/Resolved]
  - Palpitations [Recovered/Resolved]
  - Oropharyngeal pain [Recovered/Resolved]
  - Swollen tongue [Recovered/Resolved]
  - Dyspnoea [Not Recovered/Not Resolved]
  - Abdominal pain upper [Not Recovered/Not Resolved]
  - Oropharyngeal pain [Not Recovered/Not Resolved]
  - Urinary tract infection [Recovered/Resolved]
  - Off label use [Unknown]
